FAERS Safety Report 22109003 (Version 1)
Quarter: 2023Q1

REPORT INFORMATION
  Report Type: Spontaneous
  Country: US (occurrence: None)
  Receive Date: 20230316
  Receipt Date: 20230316
  Transmission Date: 20230417
  Serious: Yes (Hospitalization)
  Sender: FDA-Public Use
  Company Number: None

PATIENT
  Age: 73 Year
  Sex: Female
  Weight: 90 kg

DRUGS (1)
  1. METHOTREXATE [Suspect]
     Active Substance: METHOTREXATE
     Indication: Rheumatoid arthritis
     Dosage: 6 TABLETS ONCE A WEEK ORAL?
     Route: 048
     Dates: start: 20230303, end: 20230310

REACTIONS (5)
  - Pain [None]
  - Joint swelling [None]
  - Joint swelling [None]
  - Impaired self-care [None]
  - Weight bearing difficulty [None]

NARRATIVE: CASE EVENT DATE: 20230303
